FAERS Safety Report 12377900 (Version 1)
Quarter: 2016Q2

REPORT INFORMATION
  Report Type: Spontaneous
  Country: US (occurrence: US)
  Receive Date: 20160517
  Receipt Date: 20160517
  Transmission Date: 20160815
  Serious: No
  Sender: FDA-Public Use
  Company Number: US-JNJFOC-20160416085

PATIENT
  Age: 21 Year
  Sex: Female
  Weight: 52.16 kg

DRUGS (1)
  1. INFANTS TYLENOL [Suspect]
     Active Substance: ACETAMINOPHEN
     Indication: DYSGEUSIA
     Dosage: 1 ML, 1TIME
     Dates: start: 20160414, end: 20160414

REACTIONS (4)
  - Product use issue [Unknown]
  - Dysgeusia [Unknown]
  - Off label use [Unknown]
  - Product quality issue [Unknown]
